FAERS Safety Report 12654121 (Version 1)
Quarter: 2016Q3

REPORT INFORMATION
  Report Type: Spontaneous
  Country: US (occurrence: None)
  Receive Date: 20160815
  Receipt Date: 20160815
  Transmission Date: 20161109
  Serious: Yes (Hospitalization)
  Sender: FDA-Public Use
  Company Number: None

PATIENT
  Age: 59 Year
  Sex: Male
  Weight: 105.2 kg

DRUGS (3)
  1. CYTARABINE. [Suspect]
     Active Substance: CYTARABINE
     Dates: end: 20160730
  2. ETOPOSIDE (VP-16) [Suspect]
     Active Substance: ETOPOSIDE
     Dates: end: 20160730
  3. METHOTREXATE. [Suspect]
     Active Substance: METHOTREXATE
     Dates: end: 20160729

REACTIONS (4)
  - Chills [None]
  - Neutropenia [None]
  - Enterococcus test positive [None]
  - Body temperature increased [None]

NARRATIVE: CASE EVENT DATE: 20160808
